FAERS Safety Report 14636611 (Version 1)
Quarter: 2018Q1

REPORT INFORMATION
  Report Type: Spontaneous
  Country: US (occurrence: US)
  Receive Date: 20180313
  Receipt Date: 20180313
  Transmission Date: 20180509
  Serious: Yes (Other)
  Sender: FDA-Public Use
  Company Number: None

PATIENT
  Age: 74 Year
  Sex: Female
  Weight: 47.25 kg

DRUGS (5)
  1. VITAMIN D [Concomitant]
     Active Substance: CHOLECALCIFEROL
  2. VITAMIN C [Concomitant]
     Active Substance: ASCORBIC ACID
  3. SYNTHROID [Suspect]
     Active Substance: LEVOTHYROXINE SODIUM
     Indication: HYPOTHYROIDISM
     Dosage: ?          QUANTITY:90 TABLET(S);?
     Route: 048
     Dates: start: 20171214, end: 20180220
  4. CALCIUM [Concomitant]
     Active Substance: CALCIUM
  5. WOMENS ONE A DAY [Concomitant]

REACTIONS (9)
  - Palpitations [None]
  - Product colour issue [None]
  - Tremor [None]
  - Asthenia [None]
  - Blood thyroid stimulating hormone abnormal [None]
  - Erythema [None]
  - Nervousness [None]
  - Fatigue [None]
  - Pruritus [None]

NARRATIVE: CASE EVENT DATE: 20171214
